FAERS Safety Report 5406942-2 (Version None)
Quarter: 2007Q3

REPORT INFORMATION
  Report Type: 
  Country: None (occurrence: None)
  Receive Date: 20070803
  Receipt Date: 20070803
  Transmission Date: 20080115
  Serious: Yes (Other)
  Sender: FDA-Public Use
  Company Number: None

PATIENT
  Sex: Female
  Weight: 117.8 kg

DRUGS (1)
  1. OPTIRAY 320 [Suspect]
     Indication: SCAN
     Dates: start: 20070726, end: 20070726

REACTIONS (2)
  - OCULAR HYPERAEMIA [None]
  - PRURITUS [None]
